FAERS Safety Report 9988807 (Version 1)
Quarter: 2014Q1

REPORT INFORMATION
  Report Type: Spontaneous
  Country: US (occurrence: US)
  Receive Date: 20140310
  Receipt Date: 20140310
  Transmission Date: 20141002
  Serious: Yes (Other)
  Sender: FDA-Public Use
  Company Number: US-SA-2014SA028683

PATIENT
  Age: 53 Year
  Sex: Male
  Weight: 61.4 kg

DRUGS (34)
  1. FABRAZYME [Suspect]
     Indication: FABRY^S DISEASE
     Route: 042
     Dates: start: 20060907
  2. NORMAL SALINE [Concomitant]
  3. SODIUM CHLORIDE [Concomitant]
  4. WATER [Concomitant]
  5. EPIPEN [Concomitant]
  6. LYRICA [Concomitant]
  7. PERCOCET [Concomitant]
  8. BUMETANIDE [Concomitant]
  9. DIAZEPAM [Concomitant]
  10. MIRTAZAPINE [Concomitant]
  11. METOCLOPRAMIDE [Concomitant]
  12. LAMOTRIGINE [Concomitant]
  13. ENALAPRIL [Concomitant]
  14. CLONIDINE [Concomitant]
  15. PREDNISONE [Concomitant]
  16. OXYCODONE [Concomitant]
  17. ZYPREXA [Concomitant]
  18. LEVOTHYROXINE [Concomitant]
  19. LEXAPRO [Concomitant]
  20. CLOPIDOGREL BISULFATE [Concomitant]
  21. TRIMETHOBENZAMIDE [Concomitant]
  22. XANAX [Concomitant]
  23. DOCUSATE SODIUM [Concomitant]
  24. OXYCONTIN [Concomitant]
  25. SINGULAIR [Concomitant]
  26. HYDRALAZINE [Concomitant]
  27. ACETYLSALICYLIC ACID [Concomitant]
  28. PROVENTIL [Concomitant]
  29. KLOR-CON [Concomitant]
  30. CALCITRIOL [Concomitant]
  31. SANDIMMUNE [Concomitant]
  32. ASMANEX [Concomitant]
  33. ZOFRAN [Concomitant]
  34. BYSTOLIC [Concomitant]

REACTIONS (2)
  - Wrist fracture [Unknown]
  - Fall [Unknown]
